FAERS Safety Report 14637204 (Version 1)
Quarter: 2018Q1

REPORT INFORMATION
  Report Type: Spontaneous
  Country: FR (occurrence: FR)
  Receive Date: 20180314
  Receipt Date: 20180314
  Transmission Date: 20180509
  Serious: Yes (Other)
  Sender: FDA-Public Use
  Company Number: FR-BAUSCH-BL-2018-006172

PATIENT
  Age: 66 Year
  Sex: Female

DRUGS (2)
  1. DAPTOMYCIN. [Suspect]
     Active Substance: DAPTOMYCIN
     Indication: EVIDENCE BASED TREATMENT
     Route: 065
  2. CLINDAMYCIN. [Suspect]
     Active Substance: CLINDAMYCIN
     Indication: EVIDENCE BASED TREATMENT
     Route: 065

REACTIONS (2)
  - Rash [Recovered/Resolved]
  - Acute kidney injury [Recovered/Resolved]
